FAERS Safety Report 6425788-X (Version None)
Quarter: 2009Q4

REPORT INFORMATION
  Report Type: 
  Country: None (occurrence: None)
  Receive Date: 20091103
  Receipt Date: 20091028
  Transmission Date: 20100525
  Serious: Yes (Death)
  Sender: FDA-Public Use
  Company Number: US-GILEAD-2009-0024874

PATIENT
  Sex: Male

DRUGS (9)
  1. LETAIRIS [Suspect]
     Indication: PULMONARY ARTERIAL HYPERTENSION
     Route: 048
  2. LASIX [Concomitant]
  3. VENTAVIS [Concomitant]
  4. COMBIVENT [Concomitant]
  5. ALBUTEROL [Concomitant]
  6. VICODIN [Concomitant]
  7. AMBIEN [Concomitant]
  8. NEXIUM [Concomitant]
  9. PROVIGIL [Concomitant]

REACTIONS (1)
  - CARDIAC ARREST [None]
